FAERS Safety Report 14963332 (Version 3)
Quarter: 2019Q1

REPORT INFORMATION
  Report Type: Report from Study
  Country: US (occurrence: US)
  Receive Date: 20180601
  Receipt Date: 20190305
  Transmission Date: 20190417
  Serious: Yes (Other)
  Sender: FDA-Public Use
  Company Number: US-EMD SERONO-E2B_90044799

PATIENT
  Sex: Male

DRUGS (4)
  1. REBIF [Suspect]
     Active Substance: INTERFERON BETA-1A
     Route: 058
     Dates: start: 2018
  2. REBIF [Suspect]
     Active Substance: INTERFERON BETA-1A
     Indication: MULTIPLE SCLEROSIS
     Route: 058
     Dates: start: 20180418
  3. REBIF [Suspect]
     Active Substance: INTERFERON BETA-1A
     Route: 058
     Dates: start: 2018
  4. REBIF [Suspect]
     Active Substance: INTERFERON BETA-1A
     Route: 058
     Dates: start: 2018, end: 201810

REACTIONS (11)
  - Poisoning [Unknown]
  - Renal injury [Unknown]
  - Liver injury [Unknown]
  - Toxicity to various agents [Unknown]
  - Paralysis [Unknown]
  - Myalgia [Unknown]
  - Urine osmolarity increased [Unknown]
  - Malaise [Unknown]
  - Adverse drug reaction [Unknown]
  - Cerebrovascular accident [Unknown]
  - Obsessive-compulsive disorder [Not Recovered/Not Resolved]
